FAERS Safety Report 21867468 (Version 1)
Quarter: 2023Q1

REPORT INFORMATION
  Report Type: Spontaneous
  Country: US (occurrence: US)
  Receive Date: 20230116
  Receipt Date: 20230116
  Transmission Date: 20230418
  Serious: Yes (Hospitalization, Other)
  Sender: FDA-Public Use
  Company Number: US-BRISTOL-MYERS SQUIBB COMPANY-2023-005744

PATIENT
  Age: 81 Year
  Sex: Female

DRUGS (4)
  1. IDHIFA [Suspect]
     Active Substance: ENASIDENIB MESYLATE
     Indication: Acute myeloid leukaemia
     Dosage: ONCE DAILY
     Dates: start: 20221219
  2. VENCLEXTA [Suspect]
     Active Substance: VENETOCLAX
     Indication: Product used for unknown indication
  3. TIZANIDINE [Suspect]
     Active Substance: TIZANIDINE
     Indication: Muscle relaxant therapy
  4. TRAMADOL [Suspect]
     Active Substance: TRAMADOL
     Indication: Pain

REACTIONS (5)
  - Haemorrhage [Unknown]
  - Muscle spasms [Unknown]
  - Hallucination [Unknown]
  - Nausea [Unknown]
  - Pain [Unknown]
